FAERS Safety Report 6635984-4 (Version None)
Quarter: 2010Q1

REPORT INFORMATION
  Report Type: 
  Country: None (occurrence: None)
  Receive Date: 20100316
  Receipt Date: 20100309
  Transmission Date: 20100710
  Serious: Yes (Other)
  Sender: FDA-Public Use
  Company Number: US-SANOFI-AVENTIS-2010SA004316

PATIENT
  Age: 59 Year
  Sex: Male
  Weight: 80.2 kg

DRUGS (9)
  1. TAXOTERE [Suspect]
     Indication: PROSTATE CANCER
     Route: 042
     Dates: start: 20091116, end: 20091116
  2. TAXOTERE [Suspect]
     Route: 042
     Dates: start: 20091207, end: 20091207
  3. ELIGARD [Suspect]
     Indication: PROSTATE CANCER
     Dates: start: 20091116, end: 20091116
  4. CASODEX [Suspect]
     Indication: PROSTATE CANCER
     Dates: start: 20091116, end: 20091213
  5. AMLODIPINE [Suspect]
     Indication: HYPERTENSION
     Dates: start: 20091207, end: 20100104
  6. VITAMINS [Concomitant]
  7. SELENIUM [Concomitant]
  8. LAXATIVES [Concomitant]
  9. CARDIAC THERAPY [Concomitant]

REACTIONS (2)
  - ALANINE AMINOTRANSFERASE INCREASED [None]
  - ASPARTATE AMINOTRANSFERASE INCREASED [None]
